FAERS Safety Report 13328065 (Version 1)
Quarter: 2017Q1

REPORT INFORMATION
  Report Type: Spontaneous
  Country: US (occurrence: US)
  Receive Date: 20170313
  Receipt Date: 20170313
  Transmission Date: 20170428
  Serious: No
  Sender: FDA-Public Use
  Company Number: US-JNJFOC-20170215265

PATIENT
  Sex: Male
  Weight: 104.33 kg

DRUGS (3)
  1. MENS ROGAINE EXTRA STRENGTH [Suspect]
     Active Substance: MINOXIDIL
     Indication: ALOPECIA
     Route: 061
     Dates: end: 20170212
  2. VITAMIN C [Concomitant]
     Active Substance: ASCORBIC ACID
     Indication: PRODUCT USED FOR UNKNOWN INDICATION
     Dosage: 1
     Route: 065
  3. MENS ROGAINE EXTRA STRENGTH [Suspect]
     Active Substance: MINOXIDIL
     Indication: ALOPECIA
     Dosage: HALF A CAPFULL
     Route: 061
     Dates: start: 20161215

REACTIONS (5)
  - Pruritus [Recovering/Resolving]
  - Pain of skin [Recovering/Resolving]
  - Erythema [Recovering/Resolving]
  - Skin disorder [Recovering/Resolving]
  - Skin exfoliation [Recovering/Resolving]
